FAERS Safety Report 12192178 (Version 3)
Quarter: 2016Q4

REPORT INFORMATION
  Report Type: Report from Study
  Country: CA (occurrence: CA)
  Receive Date: 20160318
  Receipt Date: 20161124
  Transmission Date: 20170207
  Serious: Yes (Other)
  Sender: FDA-Public Use
  Company Number: CA-UCBSA-2016009670

PATIENT
  Age: 46 Year
  Sex: Female

DRUGS (3)
  1. CERTOLIZUMAB PEGOL RA [Suspect]
     Active Substance: CERTOLIZUMAB PEGOL
     Indication: RHEUMATOID ARTHRITIS
     Dosage: 400 MG, EV 2 WEEKS(QOW)
     Route: 058
     Dates: start: 20130430, end: 20130528
  2. CERTOLIZUMAB PEGOL RA [Suspect]
     Active Substance: CERTOLIZUMAB PEGOL
     Dosage: 400 MG, EV 4 WEEKS
     Route: 058
     Dates: start: 20130625
  3. BETAHISTINE [Suspect]
     Active Substance: BETAHISTINE
     Indication: PRODUCT USED FOR UNKNOWN INDICATION
     Dosage: UNK

REACTIONS (5)
  - Influenza [Unknown]
  - Ear infection [Unknown]
  - Thyroid cyst [Unknown]
  - Rheumatoid arthritis [Unknown]
  - Tinnitus [Unknown]

NARRATIVE: CASE EVENT DATE: 20161116
